FAERS Safety Report 8558326-6 (Version None)
Quarter: 2012Q3

REPORT INFORMATION
  Report Type: 
  Country: None (occurrence: None)
  Receive Date: 20120727
  Receipt Date: 20120727
  Transmission Date: 20120928
  Serious: Yes (Hospitalization)
  Sender: FDA-Public Use
  Company Number: None

PATIENT
  Age: 49 Year
  Sex: Male
  Weight: 177 kg

DRUGS (6)
  1. FERROUS SULFATE TAB [Concomitant]
  2. BC POWDER [Suspect]
     Indication: ARTHRALGIA
     Dosage: ONE DAILY X 3D PO RECENT
     Route: 048
  3. ASPIRIN [Suspect]
     Indication: ARTHRALGIA
     Dosage: 81MG QD PO CHRONIC
     Route: 048
  4. ACIPHEX [Concomitant]
  5. IBUPROFEN [Suspect]
     Indication: ARTHRALGIA
     Dosage: 800MG QID PO  RECENT
     Route: 048
  6. SYNTHROID [Concomitant]

REACTIONS (6)
  - GASTRITIS EROSIVE [None]
  - GASTRIC MUCOSA ERYTHEMA [None]
  - DIVERTICULUM [None]
  - MELAENA [None]
  - UPPER GASTROINTESTINAL HAEMORRHAGE [None]
  - HAEMORRHOIDS [None]
